FAERS Safety Report 8028638-3 (Version None)
Quarter: 2012Q1

REPORT INFORMATION
  Report Type: 
  Country: None (occurrence: None)
  Receive Date: 20120106
  Receipt Date: 20111226
  Transmission Date: 20120608
  Serious: Yes (Hospitalization, Other)
  Sender: FDA-Public Use
  Company Number: US-ACTELION-A-NJ2010-34761

PATIENT

DRUGS (1)
  1. TRACLEER [Suspect]
     Indication: PULMONARY ARTERIAL HYPERTENSION
     Dosage: UNK
     Route: 048
     Dates: start: 20030723

REACTIONS (5)
  - SCLERODERMA [None]
  - SYSTEMIC LUPUS ERYTHEMATOSUS [None]
  - INTESTINAL OBSTRUCTION [None]
  - DIVERTICULITIS [None]
  - CONCOMITANT DISEASE AGGRAVATED [None]
